FAERS Safety Report 23377887 (Version 2)
Quarter: 2024Q2

REPORT INFORMATION
  Report Type: Spontaneous
  Country: CA (occurrence: CA)
  Receive Date: 20240108
  Receipt Date: 20240430
  Transmission Date: 20240716
  Serious: Yes (Other)
  Sender: FDA-Public Use
  Company Number: CA-002147023-NVSC2023CA044139

PATIENT
  Sex: Female

DRUGS (20)
  1. ALVESCO [Suspect]
     Active Substance: CICLESONIDE
     Dosage: 1 DF,1 EVERY 1 DAYS
     Route: 048
  2. ALVESCO [Suspect]
     Active Substance: CICLESONIDE
     Dosage: 1 DF,1 EVERY 1 DAYS
     Route: 055
  3. ALVESCO [Suspect]
     Active Substance: CICLESONIDE
     Dosage: 1 DF,1 EVERY 1 DAYS
     Route: 065
  4. ALVESCO [Suspect]
     Active Substance: CICLESONIDE
     Indication: Product used for unknown indication
     Dosage: UNK, QD
     Route: 055
  5. BUDESONIDE\FORMOTEROL FUMARATE [Suspect]
     Active Substance: BUDESONIDE\FORMOTEROL FUMARATE
     Dosage: 1 DF, 1 EVERY 1 DAYS
     Route: 055
  6. BUDESONIDE\FORMOTEROL FUMARATE [Suspect]
     Active Substance: BUDESONIDE\FORMOTEROL FUMARATE
     Dosage: 1 DF, 1 EVERY 12 HOURS
     Route: 065
  7. BUDESONIDE\FORMOTEROL FUMARATE [Suspect]
     Active Substance: BUDESONIDE\FORMOTEROL FUMARATE
     Dosage: 1 DF, 1 EVERY 12 HOURS
     Route: 065
  8. BUDESONIDE\FORMOTEROL FUMARATE [Suspect]
     Active Substance: BUDESONIDE\FORMOTEROL FUMARATE
     Dosage: 1 EVERY 12 HOURS
     Route: 065
  9. BUDESONIDE\FORMOTEROL FUMARATE [Suspect]
     Active Substance: BUDESONIDE\FORMOTEROL FUMARATE
     Dosage: 2 DOSAGE FORM, QD
     Route: 055
  10. BUDESONIDE\FORMOTEROL FUMARATE [Suspect]
     Active Substance: BUDESONIDE\FORMOTEROL FUMARATE
     Dosage: 2  DF, 1 EVERY 12 HOURS
     Route: 065
  11. BUDESONIDE\FORMOTEROL FUMARATE [Suspect]
     Active Substance: BUDESONIDE\FORMOTEROL FUMARATE
     Indication: Asthma
     Dosage: 1 EVERY 12 HOURS
     Route: 055
  12. BUPROPION [Suspect]
     Active Substance: BUPROPION
     Indication: Product used for unknown indication
     Dosage: 150 MG,1 EVERY 1 DAYS
     Route: 065
  13. BUPROPION [Suspect]
     Active Substance: BUPROPION
     Dosage: 150 MG
     Route: 065
  14. MONTELUKAST SODIUM [Suspect]
     Active Substance: MONTELUKAST SODIUM
     Indication: Asthma
     Dosage: 10 MG, QD
     Route: 048
  15. MEPOLIZUMAB [Suspect]
     Active Substance: MEPOLIZUMAB
     Dosage: 100 MG, 1 EVERY 1 MONTHS
     Route: 042
  16. MEPOLIZUMAB [Suspect]
     Active Substance: MEPOLIZUMAB
     Indication: Asthma
     Dosage: 100 MG (INTRAVENOUS (NOT OTHERWISE SPECIFIED)
     Route: 042
  17. MEPOLIZUMAB [Suspect]
     Active Substance: MEPOLIZUMAB
     Dosage: 100 MG
     Route: 042
  18. NASONEX [Suspect]
     Active Substance: MOMETASONE FUROATE
     Indication: Product used for unknown indication
     Dosage: UNK (METERED DOSE)
     Route: 065
  19. SPIRIVA [Suspect]
     Active Substance: TIOTROPIUM BROMIDE MONOHYDRATE
     Indication: Asthma
     Dosage: UNK
     Route: 065
  20. SPIRIVA [Suspect]
     Active Substance: TIOTROPIUM BROMIDE MONOHYDRATE
     Dosage: UNK
     Route: 065

REACTIONS (7)
  - Cholelithiasis [Unknown]
  - Asthma exercise induced [Unknown]
  - Factor V Leiden mutation [Unknown]
  - Gestational diabetes [Unknown]
  - Hypertension [Unknown]
  - Obstructive sleep apnoea syndrome [Unknown]
  - Rhinitis [Unknown]
